FAERS Safety Report 8270387-0 (Version None)
Quarter: 2012Q2

REPORT INFORMATION
  Report Type: 
  Country: None (occurrence: None)
  Receive Date: 20120410
  Receipt Date: 20120403
  Transmission Date: 20120825
  Serious: No
  Sender: FDA-Public Use
  Company Number: US-BAYER-2012-033470

PATIENT
  Sex: Female

DRUGS (2)
  1. ALEVE (CAPLET) [Suspect]
     Indication: MYALGIA
     Dosage: 1 TABLET ONCE DAILY - 24 COUNT
     Route: 048
     Dates: start: 20120329, end: 20120403
  2. MUSCLE RELAXER [Concomitant]

REACTIONS (2)
  - DIZZINESS [None]
  - THERAPEUTIC RESPONSE DECREASED [None]
